FAERS Safety Report 21447722 (Version 1)
Quarter: 2022Q4

REPORT INFORMATION
  Report Type: Spontaneous
  Country: SI (occurrence: SI)
  Receive Date: 20221012
  Receipt Date: 20221012
  Transmission Date: 20230113
  Serious: Yes (Other)
  Sender: FDA-Public Use
  Company Number: None

PATIENT
  Age: 69 Year
  Sex: Female
  Weight: 70 kg

DRUGS (2)
  1. PAXLOVID [Interacting]
     Active Substance: NIRMATRELVIR\RITONAVIR
     Indication: COVID-19
     Dosage: STRENGHT: 150MG+100MG, DOSAGE: FIVE DAY SCHEME
     Route: 048
     Dates: start: 20220920, end: 20220924
  2. LACIDIPINE [Interacting]
     Active Substance: LACIDIPINE
     Indication: Hypertension
     Dosage: FREQ: 0.5 D;STRENGHT: 4MG DOSE. 1/2TBL
     Route: 048
     Dates: start: 20180503

REACTIONS (3)
  - Labelled drug-drug interaction issue [Recovered/Resolved]
  - Blood pressure decreased [Recovered/Resolved]
  - Loss of consciousness [Recovered/Resolved]

NARRATIVE: CASE EVENT DATE: 20220922
